FAERS Safety Report 8321787-1 (Version None)
Quarter: 2012Q2

REPORT INFORMATION
  Report Type: 
  Country: None (occurrence: None)
  Receive Date: 20120426
  Receipt Date: 20120413
  Transmission Date: 20120825
  Serious: Yes (Life-Threatening)
  Sender: FDA-Public Use
  Company Number: DSJ-2012-06345

PATIENT
  Age: 80 Year
  Sex: Female
  Weight: 48 kg

DRUGS (10)
  1. ACETYLSALICYLIC ACID SRT [Concomitant]
  2. DEPAS (ETIZOLAM) (TABLET) (ETIZOLAM) [Concomitant]
  3. OLMESARTAN MEDOXOMIL [Suspect]
     Indication: HYPERTENSION
     Dosage: 40 MG (40 MG, 1 IN 1 D), PER ORAL 120 MG (120 MG, 1 IN 1 D), PER ORAL
     Route: 048
     Dates: end: 20120329
  4. OLMESARTAN MEDOXOMIL [Suspect]
     Indication: HYPERTENSION
     Dosage: 40 MG (40 MG, 1 IN 1 D), PER ORAL 120 MG (120 MG, 1 IN 1 D), PER ORAL
     Route: 048
     Dates: start: 20120330, end: 20120330
  5. CALBLOCK (AZELNIDIPINE) (TABLET) (AZELNIDIPINE) [Suspect]
     Indication: HYPERTENSION
     Dosage: 16 MG (16 MG, 1 IN 1 D), PER ORAL 48 MG (48 MG, 1 IN 1 D), PER ORAL
     Route: 048
     Dates: end: 20120329
  6. CALBLOCK (AZELNIDIPINE) (TABLET) (AZELNIDIPINE) [Suspect]
     Indication: HYPERTENSION
     Dosage: 16 MG (16 MG, 1 IN 1 D), PER ORAL 48 MG (48 MG, 1 IN 1 D), PER ORAL
     Route: 048
     Dates: start: 20120330, end: 20120330
  7. DOGMATYL (SULPIRIDE) (SULPIRIDE) [Concomitant]
  8. CARVEDILOL [Suspect]
     Indication: HYPERTENSION
     Dosage: 10 MG (10 MG, 1 IN 1 D), PER ORAL 30 MG (30 MG, 1 IN 1 D), PER ORAL
     Route: 048
     Dates: end: 20120329
  9. CARVEDILOL [Suspect]
     Indication: HYPERTENSION
     Dosage: 10 MG (10 MG, 1 IN 1 D), PER ORAL 30 MG (30 MG, 1 IN 1 D), PER ORAL
     Route: 048
     Dates: start: 20120330, end: 20120330
  10. PROPAFENONE HYDROCHLORIDE [Concomitant]

REACTIONS (7)
  - HEART RATE DECREASED [None]
  - CARDIO-RESPIRATORY ARREST [None]
  - HAEMORRHAGE [None]
  - OVERDOSE [None]
  - DRUG DISPENSING ERROR [None]
  - COMA [None]
  - BLOOD PRESSURE INCREASED [None]
